FAERS Safety Report 13802881 (Version 2)
Quarter: 2017Q4

REPORT INFORMATION
  Report Type: Report from Study
  Country: US (occurrence: US)
  Receive Date: 20170727
  Receipt Date: 20171007
  Transmission Date: 20180320
  Serious: Yes (Hospitalization)
  Sender: FDA-Public Use
  Company Number: US-AMGEN-USACT2017111696

PATIENT
  Age: 49 Year
  Sex: Female
  Weight: 106.3 kg

DRUGS (31)
  1. PROMETHAZINE [Concomitant]
     Active Substance: PROMETHAZINE\PROMETHAZINE HYDROCHLORIDE
     Dosage: 6.25-12.5 MG, UNK
     Route: 048
     Dates: start: 20170427, end: 20170427
  2. VANCOMYCIN [Concomitant]
     Active Substance: VANCOMYCIN
     Dosage: 1000 MG, UNK
     Route: 042
     Dates: start: 20170427, end: 20170428
  3. CAMPHOR [Concomitant]
     Active Substance: CAMPHOR
     Dosage: 1 UNK, UNK
     Route: 061
     Dates: start: 20170509
  4. CETIRIZINE [Concomitant]
     Active Substance: CETIRIZINE HYDROCHLORIDE
     Dosage: 10 MG, UNK
     Route: 048
     Dates: start: 2005
  5. ASPIRIN. [Concomitant]
     Active Substance: ASPIRIN
     Dosage: 250 MG, UNK
     Route: 048
     Dates: start: 20170519
  6. LORAZEPAM. [Concomitant]
     Active Substance: LORAZEPAM
     Dosage: 0.5-1 MG, UNK
     Dates: start: 20170619
  7. CITALOPRAM [Concomitant]
     Active Substance: CITALOPRAM HYDROBROMIDE
     Dosage: 40 MG, UNK
     Route: 048
     Dates: start: 2013
  8. DIPHENHYDRAMINE. [Concomitant]
     Active Substance: DIPHENHYDRAMINE
     Dosage: 50 MG, UNK
     Route: 048
     Dates: start: 20170301, end: 20170428
  9. TALIMOGENE LAHERPAREPVEC [Suspect]
     Active Substance: TALIMOGENE LAHERPAREPVEC
     Indication: MALIGNANT MELANOMA
     Dosage: UNK
     Route: 026
     Dates: start: 20170405, end: 20170719
  10. ONDANSETRON [Concomitant]
     Active Substance: ONDANSETRON
     Dosage: 4-8 MG, UNK
     Dates: start: 20170223, end: 20170427
  11. MENTHOL. [Concomitant]
     Active Substance: MENTHOL
     Dosage: 1 UNK, UNK
     Route: 061
     Dates: start: 20170509
  12. PETROLATUM. [Concomitant]
     Active Substance: PETROLATUM
     Dosage: 59.14 UNK, UNK
     Route: 061
     Dates: start: 20170509
  13. CAFFEINE. [Concomitant]
     Active Substance: CAFFEINE
     Dosage: 65 MG, UNK
     Route: 048
     Dates: start: 20170519
  14. ESOMEPRAZOLE [Concomitant]
     Active Substance: ESOMEPRAZOLE
     Dosage: 20 MG, UNK
     Route: 048
     Dates: start: 201610
  15. LEVOTHYROXINE. [Concomitant]
     Active Substance: LEVOTHYROXINE
     Dosage: 100 MUG, 150 MG, UNK
     Route: 048
     Dates: start: 201701
  16. FLUTICASONE. [Concomitant]
     Active Substance: FLUTICASONE
     Dosage: 50 MUG, UNK
     Route: 045
     Dates: start: 20170408
  17. DOXYCYCLINE. [Concomitant]
     Active Substance: DOXYCYCLINE
     Dosage: 200 MG, UNK
     Route: 048
     Dates: start: 20170412, end: 20170505
  18. PIPERACILLIN [Concomitant]
     Active Substance: PIPERACILLIN
     Dosage: 3.375 UNK, UNK
     Route: 042
     Dates: start: 20170427, end: 20170428
  19. TAZOBACTAM [Concomitant]
     Active Substance: TAZOBACTAM
     Dosage: 3.375 G, UNK
     Route: 042
     Dates: start: 20170427, end: 20170428
  20. PHENOL. [Concomitant]
     Active Substance: PHENOL
     Dosage: 0.54 UNK, UNK
     Route: 061
     Dates: start: 20170509
  21. NAPROXEN. [Concomitant]
     Active Substance: NAPROXEN
     Dosage: 500 MG, UNK
     Route: 048
     Dates: start: 201610
  22. DOCUSATE [Concomitant]
     Active Substance: DOCUSATE
     Dosage: 100 MG, UNK
     Route: 048
     Dates: start: 20170417
  23. HYDROCHLOROTHIAZIDE. [Concomitant]
     Active Substance: HYDROCHLOROTHIAZIDE
     Dosage: 6.25 MG, UNK
     Route: 048
     Dates: start: 2015
  24. PHENERGAN [Concomitant]
     Active Substance: PROMETHAZINE HYDROCHLORIDE
     Dosage: 12.5 MG, UNK
     Route: 048
     Dates: start: 20170201
  25. BUPROPION. [Concomitant]
     Active Substance: BUPROPION
     Dosage: 150 MG, UNK
     Route: 048
     Dates: start: 20170301
  26. ZOLPIDEM [Concomitant]
     Active Substance: ZOLPIDEM\ZOLPIDEM TARTRATE
     Dosage: 10 MG, UNK
     Route: 048
     Dates: start: 20170401
  27. IBUPROFEN. [Concomitant]
     Active Substance: IBUPROFEN
     Dosage: 400 MG, UNK
     Route: 048
     Dates: start: 20170404
  28. BISOPROLOL [Concomitant]
     Active Substance: BISOPROLOL
     Dosage: 2.5 MG, UNK
     Route: 048
     Dates: start: 2015
  29. PREDNISONE. [Concomitant]
     Active Substance: PREDNISONE
     Dosage: 5 MG, UNK
     Route: 048
     Dates: start: 201702
  30. PEMBROLIZUMAB. [Suspect]
     Active Substance: PEMBROLIZUMAB
     Indication: MALIGNANT MELANOMA
     Dosage: UNK MG, UNK
     Route: 042
     Dates: start: 20170405, end: 20170719
  31. ACETAMINOPHEN. [Concomitant]
     Active Substance: ACETAMINOPHEN
     Dosage: 250-1000 MG, UNK
     Route: 048
     Dates: start: 20170407

REACTIONS (1)
  - Papilloedema [Not Recovered/Not Resolved]

NARRATIVE: CASE EVENT DATE: 20170719
